FAERS Safety Report 6537928-2 (Version None)
Quarter: 2010Q1

REPORT INFORMATION
  Report Type: 
  Country: None (occurrence: None)
  Receive Date: 20100114
  Receipt Date: 20100104
  Transmission Date: 20100710
  Serious: Yes (Death, Hospitalization)
  Sender: FDA-Public Use
  Company Number: AR-BRISTOL-MYERS SQUIBB COMPANY-14921928

PATIENT
  Age: 71 Year
  Sex: Male

DRUGS (8)
  1. APIXABAN [Suspect]
     Indication: THROMBOSIS PROPHYLAXIS
     Dosage: INTERRUPTED ON DEC09
     Route: 048
     Dates: start: 20090828
  2. WARFARIN SODIUM [Suspect]
     Indication: THROMBOSIS PROPHYLAXIS
     Dosage: INTERRUPTED ON DEC09
     Route: 048
     Dates: start: 20090828
  3. PLACEBO [Suspect]
     Indication: THROMBOSIS PROPHYLAXIS
     Dosage: INTERRUPTED ON DEC09
     Route: 048
     Dates: start: 20090828
  4. ESPIRONOLACTONA [Concomitant]
     Dates: start: 20070101, end: 20091201
  5. FUROSEMIDE [Concomitant]
     Dates: start: 20070101, end: 20091201
  6. ENALAPRIL [Concomitant]
     Dates: start: 20070101, end: 20091201
  7. DIGOXIN [Concomitant]
     Dates: start: 20070101, end: 20091201
  8. GLYBURIDE [Concomitant]
     Dates: start: 20060101, end: 20091201

REACTIONS (1)
  - ISCHAEMIC STROKE [None]
